FAERS Safety Report 4707837-X (Version None)
Quarter: 2005Q3

REPORT INFORMATION
  Report Type: 
  Country: None (occurrence: None)
  Receive Date: 20050705
  Receipt Date: 20050705
  Transmission Date: 20060218
  Serious: No
  Sender: FDA-Public Use
  Company Number: None

PATIENT
  Age: 77 Year
  Sex: Female
  Weight: 54.4 kg

DRUGS (6)
  1. LEVAQUIN [Suspect]
     Dosage: 500 MG    INTRAVENOU
     Route: 042
     Dates: start: 20050429, end: 20050429
  2. PROTONIX [Concomitant]
  3. FLONASE [Concomitant]
  4. ZOCOR [Concomitant]
  5. ASPIRIN [Concomitant]
  6. LEVOTHYROXINE [Concomitant]

REACTIONS (3)
  - INFUSION RELATED REACTION [None]
  - INFUSION SITE ERYTHEMA [None]
  - INFUSION SITE PRURITUS [None]
